FAERS Safety Report 20418104 (Version 1)
Quarter: 2022Q1

REPORT INFORMATION
  Report Type: Spontaneous
  Country: US (occurrence: US)
  Receive Date: 20220202
  Receipt Date: 20220202
  Transmission Date: 20220423
  Serious: Yes (Death)
  Sender: FDA-Public Use
  Company Number: US-ABBVIE-22K-163-4259782-00

PATIENT
  Age: 23 Year
  Sex: Male
  Weight: 122.58 kg

DRUGS (7)
  1. DEPAKOTE [Suspect]
     Active Substance: DIVALPROEX SODIUM
     Indication: Generalised tonic-clonic seizure
     Dosage: AT BEDTIME
     Route: 065
  2. DEPAKOTE [Suspect]
     Active Substance: DIVALPROEX SODIUM
     Dosage: IN THE MORNING
     Route: 065
  3. QUETIAPINE [Concomitant]
     Active Substance: QUETIAPINE
     Indication: Generalised tonic-clonic seizure
  4. QUETIAPINE [Concomitant]
     Active Substance: QUETIAPINE
     Dosage: REDUCED
  5. CLONIDINE [Concomitant]
     Active Substance: CLONIDINE
     Indication: Generalised tonic-clonic seizure
     Dosage: AT BEDTIME
  6. RISPERIDONE [Concomitant]
     Active Substance: RISPERIDONE
     Indication: Agitation
     Dosage: PRN
  7. FLUVOXAMINE [Concomitant]
     Active Substance: FLUVOXAMINE
     Indication: Obsessive-compulsive disorder

REACTIONS (3)
  - Acute hepatic failure [Fatal]
  - Hepatic encephalopathy [Fatal]
  - Blood copper increased [Fatal]
